FAERS Safety Report 20612010 (Version 3)
Quarter: 2022Q2

REPORT INFORMATION
  Report Type: Report from Study
  Country: US (occurrence: US)
  Receive Date: 20220318
  Receipt Date: 20220421
  Transmission Date: 20220721
  Serious: Yes (Other)
  Sender: FDA-Public Use
  Company Number: US-PFIZER INC-202200157626

PATIENT
  Age: 84 Year
  Sex: Female

DRUGS (1)
  1. LYRICA [Suspect]
     Active Substance: PREGABALIN
     Indication: Fibromyalgia
     Dosage: 75 MG, 3X/DAY, (TAKE 1 (ONE) CAPSULE PO TID)
     Route: 048

REACTIONS (3)
  - Fall [Unknown]
  - Wrist fracture [Unknown]
  - Product prescribing error [Unknown]
